FAERS Safety Report 24732843 (Version 1)
Quarter: 2024Q4

REPORT INFORMATION
  Report Type: Spontaneous
  Country: GR (occurrence: GR)
  Receive Date: 20241213
  Receipt Date: 20241213
  Transmission Date: 20250115
  Serious: Yes (Other)
  Sender: BRISTOL-MYERS SQUIBB COMPANY
  Company Number: GR-TILLOMEDPR-2024-EPL-006228

PATIENT
  Sex: Female

DRUGS (5)
  1. NIVOLUMAB [Suspect]
     Active Substance: NIVOLUMAB
     Indication: Hodgkin^s disease refractory
     Dosage: UNK
  2. ETOPOSIDE [Suspect]
     Active Substance: ETOPOSIDE
     Indication: Hodgkin^s disease refractory
     Dosage: UNK
  3. CARMUSTINE [Suspect]
     Active Substance: CARMUSTINE
     Indication: Hodgkin^s disease refractory
     Dosage: UNK
  4. MELPHALAN [Suspect]
     Active Substance: MELPHALAN
     Indication: Hodgkin^s disease refractory
     Dosage: UNK
  5. CYTARABINE [Suspect]
     Active Substance: CYTARABINE
     Indication: Hodgkin^s disease refractory
     Dosage: UNK

REACTIONS (4)
  - Engraftment syndrome [Unknown]
  - C-reactive protein increased [Unknown]
  - Pyrexia [Unknown]
  - Rash [Unknown]
